FAERS Safety Report 8784012 (Version 1)
Quarter: 2012Q4

REPORT INFORMATION
  Report Type: 
  Country: UZ (occurrence: UZ)
  Receive Date: 20120913
  Receipt Date: 20120913
  Transmission Date: 20130627
  Serious: Yes (Death, Other)
  Sender: FDA-Public Use
  Company Number: PHHY2008UZ044200

PATIENT
  Age: 52 Year
  Sex: Female

DRUGS (1)
  1. GLIVEC [Suspect]
     Dosage: 600 mg, UNK
     Dates: start: 20060123

REACTIONS (4)
  - Death [Fatal]
  - Cerebrovascular accident [Unknown]
  - Chronic myeloid leukaemia [Unknown]
  - Hypertension [Unknown]
